FAERS Safety Report 6483971-1 (Version None)
Quarter: 2009Q4

REPORT INFORMATION
  Report Type: 
  Country: None (occurrence: None)
  Receive Date: 20091208
  Receipt Date: 20091208
  Transmission Date: 20100525
  Serious: Yes (Other)
  Sender: FDA-Public Use
  Company Number: None

PATIENT
  Age: 47 Year
  Sex: Male
  Weight: 68.0396 kg

DRUGS (1)
  1. WAL-ZAN 150 WALGREENS [Suspect]
     Dates: start: 20091202, end: 20091204

REACTIONS (3)
  - ANEURYSM [None]
  - MIGRAINE [None]
  - OROPHARYNGEAL PAIN [None]
